FAERS Safety Report 21374945 (Version 1)
Quarter: 2022Q3

REPORT INFORMATION
  Report Type: Spontaneous
  Country: US (occurrence: US)
  Receive Date: 20220926
  Receipt Date: 20220926
  Transmission Date: 20221027
  Serious: Yes (Death, Life-Threatening, Other)
  Sender: FDA-Public Use
  Company Number: US-drreddys-LIT/USA/22/0154841

PATIENT
  Age: 74 Year
  Sex: Female

DRUGS (22)
  1. DEXAMETHASONE SODIUM PHOSPHATE [Suspect]
     Active Substance: DEXAMETHASONE SODIUM PHOSPHATE
     Indication: Central nervous system lymphoma
  2. DEXAMETHASONE SODIUM PHOSPHATE [Suspect]
     Active Substance: DEXAMETHASONE SODIUM PHOSPHATE
     Indication: Disease progression
  3. TOCILIZUMAB [Suspect]
     Active Substance: TOCILIZUMAB
     Indication: Central nervous system lymphoma
  4. TOCILIZUMAB [Suspect]
     Active Substance: TOCILIZUMAB
     Indication: Disease progression
  5. SILTUXIMAB [Suspect]
     Active Substance: SILTUXIMAB
     Indication: Central nervous system lymphoma
  6. SILTUXIMAB [Suspect]
     Active Substance: SILTUXIMAB
     Indication: Disease progression
  7. AXICABTAGENE CILOLEUCEL [Suspect]
     Active Substance: AXICABTAGENE CILOLEUCEL
     Indication: Central nervous system lymphoma
  8. AXICABTAGENE CILOLEUCEL [Suspect]
     Active Substance: AXICABTAGENE CILOLEUCEL
     Indication: Condition aggravated
     Route: 037
  9. AXICABTAGENE CILOLEUCEL [Suspect]
     Active Substance: AXICABTAGENE CILOLEUCEL
     Route: 037
  10. AXICABTAGENE CILOLEUCEL [Suspect]
     Active Substance: AXICABTAGENE CILOLEUCEL
     Route: 037
  11. METHOTREXATE [Concomitant]
     Active Substance: METHOTREXATE
     Indication: Metastases to meninges
     Route: 037
  12. METHOTREXATE [Concomitant]
     Active Substance: METHOTREXATE
     Route: 037
  13. METHOTREXATE [Concomitant]
     Active Substance: METHOTREXATE
     Route: 037
  14. METHOTREXATE [Concomitant]
     Active Substance: METHOTREXATE
     Route: 037
  15. CYTARABINE [Concomitant]
     Active Substance: CYTARABINE
     Indication: Metastases to meninges
     Route: 037
  16. CYTARABINE [Concomitant]
     Active Substance: CYTARABINE
     Route: 037
  17. CYTARABINE [Concomitant]
     Active Substance: CYTARABINE
     Route: 037
  18. CYTARABINE [Concomitant]
     Active Substance: CYTARABINE
     Route: 037
  19. AXICABTAGENE CILOLEUCEL [Concomitant]
     Active Substance: AXICABTAGENE CILOLEUCEL
     Indication: Central nervous system lymphoma
  20. AXICABTAGENE CILOLEUCEL [Concomitant]
     Active Substance: AXICABTAGENE CILOLEUCEL
     Indication: Condition aggravated
     Route: 037
  21. AXICABTAGENE CILOLEUCEL [Concomitant]
     Active Substance: AXICABTAGENE CILOLEUCEL
     Route: 037
  22. AXICABTAGENE CILOLEUCEL [Concomitant]
     Active Substance: AXICABTAGENE CILOLEUCEL
     Route: 037

REACTIONS (9)
  - Multiple organ dysfunction syndrome [Fatal]
  - Drug ineffective [Unknown]
  - Mental status changes [Recovering/Resolving]
  - Pancytopenia [Unknown]
  - Acute kidney injury [Unknown]
  - Enterococcal bacteraemia [Unknown]
  - Gastrointestinal haemorrhage [Unknown]
  - Exfoliative rash [Unknown]
  - Colitis [Unknown]
